FAERS Safety Report 20708132 (Version 3)
Quarter: 2022Q3

REPORT INFORMATION
  Report Type: Report from Study
  Country: JP (occurrence: JP)
  Receive Date: 20220414
  Receipt Date: 20220727
  Transmission Date: 20221027
  Serious: Yes (Death, Hospitalization, Other)
  Sender: FDA-Public Use
  Company Number: JP-NOVARTISPH-NVSJ2022JP005883

PATIENT
  Age: 80 Year
  Sex: Male
  Weight: 52 kg

DRUGS (12)
  1. ENTRESTO [Suspect]
     Active Substance: SACUBITRIL\VALSARTAN
     Indication: Cardiac failure chronic
     Dosage: 50 MG, BID
     Route: 065
     Dates: start: 20210906, end: 20210927
  2. EPLERENONE [Suspect]
     Active Substance: EPLERENONE
     Indication: Cardiac failure
     Dosage: UNK
     Route: 065
  3. SAMSCA [Concomitant]
     Active Substance: TOLVAPTAN
     Indication: Cardiac failure
     Dosage: UNK
     Route: 065
  4. FUROSEMIDE [Concomitant]
     Active Substance: FUROSEMIDE
     Indication: Cardiac failure
     Dosage: UNK
     Route: 065
  5. TORSEMIDE [Concomitant]
     Active Substance: TORSEMIDE
     Indication: Cardiac failure
     Dosage: UNK
     Route: 065
  6. CLOPIDOGREL [Concomitant]
     Active Substance: CLOPIDOGREL BISULFATE
     Indication: Product used for unknown indication
     Dosage: UNK
     Route: 065
  7. ATORVASTATIN [Concomitant]
     Active Substance: ATORVASTATIN
     Indication: Product used for unknown indication
     Dosage: UNK
     Route: 065
  8. BISOPROLOL [Concomitant]
     Active Substance: BISOPROLOL
     Indication: Cardiac failure
     Dosage: UNK
     Route: 065
  9. ESOMEPRAZOLE MAGNESIUM [Concomitant]
     Active Substance: ESOMEPRAZOLE MAGNESIUM
     Indication: Product used for unknown indication
     Dosage: UNK
     Route: 065
  10. NICORANDIL [Concomitant]
     Active Substance: NICORANDIL
     Indication: Cardiac failure
     Dosage: UNK
     Route: 065
  11. ISOSORBIDE [Concomitant]
     Active Substance: ISOSORBIDE
     Indication: Cardiac failure
     Dosage: UNK
     Route: 065
  12. PREDONINE [Concomitant]
     Active Substance: PREDNISOLONE
     Indication: Product used for unknown indication
     Dosage: UNK
     Route: 065

REACTIONS (2)
  - Cardiac failure chronic [Fatal]
  - Hyperkalaemia [Recovered/Resolved]

NARRATIVE: CASE EVENT DATE: 20210927
